FAERS Safety Report 20013387 (Version 1)
Quarter: 2021Q4

REPORT INFORMATION
  Report Type: Report from Study
  Country: ES (occurrence: ES)
  Receive Date: 20211029
  Receipt Date: 20211029
  Transmission Date: 20220303
  Serious: Yes (Hospitalization)
  Sender: FDA-Public Use
  Company Number: None

PATIENT
  Age: 75 Year
  Sex: Male

DRUGS (5)
  1. LOPINAVIR\RITONAVIR [Suspect]
     Active Substance: LOPINAVIR\RITONAVIR
     Indication: COVID-19
     Dosage: 800 MILLIGRAM, QD
     Route: 048
     Dates: start: 20200324, end: 20200327
  2. HYDROXYCHLOROQUINE SULFATE [Suspect]
     Active Substance: HYDROXYCHLOROQUINE SULFATE
     Indication: COVID-19
     Dosage: 1.4 GRAM, QD
     Route: 048
     Dates: start: 20200324, end: 20200326
  3. AMOXICILLIN [Concomitant]
     Active Substance: AMOXICILLIN
     Dosage: 3 GRAM
     Route: 042
     Dates: start: 20200324, end: 20200326
  4. BEMIPARIN SODIUM [Concomitant]
     Active Substance: BEMIPARIN SODIUM
     Dosage: 2500 INTERNATIONAL UNIT, QD
     Route: 058
     Dates: start: 20200324, end: 20200327
  5. INTERFERONUM BETA-1B ADNR [Concomitant]
     Indication: COVID-19
     Dosage: 4 MEGA-INTERNATIONAL UNIT, TOTAL
     Route: 058
     Dates: start: 20200324, end: 20200324

REACTIONS (1)
  - Long QT syndrome [Recovered/Resolved]

NARRATIVE: CASE EVENT DATE: 20200325
